FAERS Safety Report 8554375-2 (Version None)
Quarter: 2012Q3

REPORT INFORMATION
  Report Type: 
  Country: None (occurrence: None)
  Receive Date: 20120731
  Receipt Date: 20120717
  Transmission Date: 20120928
  Serious: Yes (Hospitalization)
  Sender: FDA-Public Use
  Company Number: FR-TEVA-350121ISR

PATIENT
  Age: 77 Year
  Sex: Male

DRUGS (2)
  1. ETOPOSIDE [Suspect]
     Indication: NASOPHARYNGEAL CANCER
     Route: 042
     Dates: start: 20120411, end: 20120413
  2. CARBOPLATIN [Suspect]
     Indication: NASOPHARYNGEAL CANCER
     Route: 042
     Dates: start: 20120411, end: 20120411

REACTIONS (14)
  - DERMATITIS EXFOLIATIVE [None]
  - PYREXIA [None]
  - NASAL NECROSIS [None]
  - APHTHOUS STOMATITIS [None]
  - CHILLS [None]
  - SKIN LESION [None]
  - STOMATITIS [None]
  - FEEDING DISORDER [None]
  - TOXIC SKIN ERUPTION [None]
  - AGRANULOCYTOSIS [None]
  - SKIN EXFOLIATION [None]
  - GENERALISED ERYTHEMA [None]
  - DRY SKIN [None]
  - ORAL HERPES [None]
